FAERS Safety Report 7064976-9 (Version None)
Quarter: 2010Q4

REPORT INFORMATION
  Report Type: 
  Country: None (occurrence: None)
  Receive Date: 20101027
  Receipt Date: 20101013
  Transmission Date: 20110411
  Serious: Yes (Other)
  Sender: FDA-Public Use
  Company Number: PHNR2007AU01478

PATIENT
  Sex: Female

DRUGS (8)
  1. CLOZARIL [Suspect]
     Indication: SCHIZOPHRENIA
     Dosage: 25 MG, DAILY
     Route: 048
     Dates: start: 19970731, end: 19970828
  2. CLOZARIL [Suspect]
     Dosage: 25 MG - 800 MG DAILY
     Route: 048
     Dates: start: 19980512
  3. CLOZARIL [Suspect]
     Dosage: 600 MG DAILY
     Route: 048
  4. LITHIUM [Concomitant]
     Dosage: 250MG MANE, 300MG NOCTE
  5. LITHIUM [Concomitant]
     Dosage: 500 MG DAILY
  6. LEVOTHYROXINE SODIUM [Concomitant]
     Dosage: 150MG DAILY
  7. LEVOTHYROXINE SODIUM [Concomitant]
     Dosage: 100 UG DAILY
  8. OMEPRAZOLE [Concomitant]
     Dosage: 20 MG DAILY

REACTIONS (14)
  - ACQUIRED PIGMENTED RETINOPATHY [None]
  - BLINDNESS [None]
  - CATARACT NUCLEAR [None]
  - CATARACT SUBCAPSULAR [None]
  - CORNEAL DISORDER [None]
  - CORNEAL PIGMENTATION [None]
  - LENTICULAR OPACITIES [None]
  - MACULOPATHY [None]
  - PIGMENTATION DISORDER [None]
  - RETINAL DEGENERATION [None]
  - RETINAL PIGMENTATION [None]
  - RETINOGRAM ABNORMAL [None]
  - RETINOPATHY [None]
  - VISUAL ACUITY REDUCED [None]
